FAERS Safety Report 4956340-0 (Version None)
Quarter: 2006Q1

REPORT INFORMATION
  Report Type: 
  Country: None (occurrence: None)
  Receive Date: 20060323
  Receipt Date: 20060307
  Transmission Date: 20060701
  Serious: Yes (Hospitalization)
  Sender: FDA-Public Use
  Company Number: SE200603001756

PATIENT
  Sex: Female

DRUGS (2)
  1. HUMALOG PEN [Suspect]
  2. SALINE (DEMO HGH RECONSTITUTION KIT) (SALINE (DEMO HGH RECONSTITUTION [Concomitant]

REACTIONS (2)
  - PHARMACEUTICAL PRODUCT COMPLAINT [None]
  - WRONG DRUG ADMINISTERED [None]
